FAERS Safety Report 23429527 (Version 1)
Quarter: 2024Q1

REPORT INFORMATION
  Report Type: Spontaneous
  Country: US (occurrence: None)
  Receive Date: 20240122
  Receipt Date: 20240122
  Transmission Date: 20240409
  Serious: Yes (Disabling)
  Sender: FDA-Public Use
  Company Number: None

PATIENT
  Age: 58 Year
  Sex: Female
  Weight: 58.5 kg

DRUGS (5)
  1. OCREVUS [Suspect]
     Active Substance: OCRELIZUMAB
     Indication: Multiple sclerosis
     Dosage: OTHER FREQUENCY : IV INFUSION Q6MONT;?
     Route: 042
     Dates: start: 20200228, end: 20220531
  2. TYSABRI [Suspect]
     Active Substance: NATALIZUMAB
  3. BREO ELLIPTA [Concomitant]
     Active Substance: FLUTICASONE FUROATE\VILANTEROL TRIFENATATE
  4. CHOLECALCIFEROL [Concomitant]
     Active Substance: CHOLECALCIFEROL
  5. Multiple vitamin [Concomitant]

REACTIONS (3)
  - Breast cancer [None]
  - Malignant melanoma [None]
  - Shoulder operation [None]

NARRATIVE: CASE EVENT DATE: 20220524
